FAERS Safety Report 8906315 (Version 2)
Quarter: 2013Q1

REPORT INFORMATION
  Report Type: Spontaneous
  Country: US (occurrence: None)
  Receive Date: 20121107
  Receipt Date: 20121120
  Transmission Date: 20140127
  Serious: Yes (Other)
  Sender: FDA-Public Use
  Company Number: ADR-2012-02025

PATIENT
  Sex: Male

DRUGS (1)
  1. LIORESAL INTRATHECAL [Suspect]
     Indication: MUSCLE SPASTICITY
     Dosage: 521.8 MCG/ DAY

REACTIONS (8)
  - General physical health deterioration [None]
  - Muscle spasticity [None]
  - Wheelchair user [None]
  - Fatigue [None]
  - Urinary retention [None]
  - Impaired work ability [None]
  - Pump reservoir issue [None]
  - Device deposit issue [None]
